FAERS Safety Report 4831662-2 (Version None)
Quarter: 2005Q4

REPORT INFORMATION
  Report Type: 
  Country: None (occurrence: None)
  Receive Date: 20051116
  Receipt Date: 20051104
  Transmission Date: 20060501
  Serious: Yes (Death, Life-Threatening)
  Sender: FDA-Public Use
  Company Number: 2005107651

PATIENT
  Sex: Male

DRUGS (1)
  1. CARDURA [Suspect]
     Indication: ILL-DEFINED DISORDER
     Dosage: ORAL
     Route: 048
     Dates: end: 20050101

REACTIONS (6)
  - DEATH OF CHILD [None]
  - GASTRIC DISORDER [None]
  - MALAISE [None]
  - PROSTATIC OPERATION [None]
  - SUICIDE ATTEMPT [None]
  - TREATMENT NONCOMPLIANCE [None]
